FAERS Safety Report 7509200-5 (Version None)
Quarter: 2011Q2

REPORT INFORMATION
  Report Type: 
  Country: None (occurrence: None)
  Receive Date: 20110527
  Receipt Date: 20110516
  Transmission Date: 20111010
  Serious: Yes (Other)
  Sender: FDA-Public Use
  Company Number: US-JNJFOC-20110508641

PATIENT
  Sex: Female

DRUGS (7)
  1. AMBIEN [Concomitant]
     Route: 065
  2. SEROQUEL [Concomitant]
     Route: 065
  3. FANAPT [Concomitant]
     Route: 065
  4. ABILIFY [Concomitant]
     Route: 065
  5. TEGRETOL [Concomitant]
     Route: 065
  6. RISPERDAL [Suspect]
     Indication: PRODUCT USED FOR UNKNOWN INDICATION
     Route: 065
  7. RISPERDAL [Suspect]
     Route: 065

REACTIONS (2)
  - INSOMNIA [None]
  - HALLUCINATION [None]
